FAERS Safety Report 8448279-3 (Version None)
Quarter: 2012Q2

REPORT INFORMATION
  Report Type: 
  Country: None (occurrence: None)
  Receive Date: 20120619
  Receipt Date: 20120613
  Transmission Date: 20120825
  Serious: Yes (Other)
  Sender: FDA-Public Use
  Company Number: US-PFIZER INC-2012143612

PATIENT
  Sex: Female

DRUGS (2)
  1. AROMASIN [Suspect]
     Dosage: UNK
     Dates: start: 20120101
  2. AROMASIN [Suspect]
     Dosage: UNK
     Dates: start: 20120301

REACTIONS (6)
  - RENAL FAILURE [None]
  - NAUSEA [None]
  - CREATININE RENAL CLEARANCE DECREASED [None]
  - FATIGUE [None]
  - ARTHRALGIA [None]
  - BLOOD CREATININE INCREASED [None]
